FAERS Safety Report 9919675 (Version 1)
Quarter: 2014Q1

REPORT INFORMATION
  Report Type: Spontaneous
  Country: US (occurrence: US)
  Receive Date: 20140224
  Receipt Date: 20140224
  Transmission Date: 20141002
  Serious: Yes (Death, Other)
  Sender: FDA-Public Use
  Company Number: PHHY2014US020544

PATIENT
  Age: 8 Year
  Sex: Male
  Weight: 72 kg

DRUGS (2)
  1. CICLOSPORIN [Suspect]
  2. ECULIZUMAB [Suspect]
     Indication: THROMBOTIC MICROANGIOPATHY
     Dosage: 900 MG, QW2

REACTIONS (11)
  - Multi-organ failure [Fatal]
  - Pulmonary haemorrhage [Unknown]
  - Complement factor increased [Unknown]
  - Complement factor decreased [Unknown]
  - Renal failure acute [Unknown]
  - Glomerular filtration rate decreased [Unknown]
  - Acute graft versus host disease in skin [Recovered/Resolved]
  - Acute graft versus host disease in intestine [Recovered/Resolved]
  - Acute graft versus host disease [Not Recovered/Not Resolved]
  - Thrombotic microangiopathy [Unknown]
  - Hypertension [Unknown]
